FAERS Safety Report 6885102-2 (Version None)
Quarter: 2010Q3

REPORT INFORMATION
  Report Type: 
  Country: None (occurrence: None)
  Receive Date: 20100727
  Receipt Date: 20100727
  Transmission Date: 20110219
  Serious: Yes (Life-Threatening, Hospitalization)
  Sender: FDA-Public Use
  Company Number: None

PATIENT
  Sex: Female

DRUGS (1)
  1. SLIMQUICK EXTREME 120 RAPID LIQUID GELS / SKU#197521 [Suspect]
     Indication: WEIGHT CONTROL
     Dosage: 3 832 MG LIQUID GELS
     Dates: start: 20100701

REACTIONS (1)
  - UNEVALUABLE EVENT [None]
